FAERS Safety Report 17115807 (Version 1)
Quarter: 2019Q4

REPORT INFORMATION
  Report Type: Spontaneous
  Country: US (occurrence: US)
  Receive Date: 20191204
  Receipt Date: 20191204
  Transmission Date: 20200122
  Serious: No
  Sender: FDA-Public Use
  Company Number: None

PATIENT
  Age: 85 Year
  Sex: Male
  Weight: 81.6 kg

DRUGS (2)
  1. HEPARIN INJECTION [Suspect]
     Active Substance: HEPARIN SODIUM
     Indication: CATHETERISATION CARDIAC
     Dosage: ?          OTHER FREQUENCY:ONCE;?
     Route: 042
     Dates: start: 20191202, end: 20191202
  2. HEPARIN INJECTION [Suspect]
     Active Substance: HEPARIN SODIUM
     Indication: CATHETERISATION CARDIAC
     Dosage: ?          OTHER FREQUENCY:ONCE;?
     Route: 042
     Dates: start: 20191202, end: 20191202

REACTIONS (4)
  - Coagulation time [None]
  - Coagulation test abnormal [None]
  - Drug ineffective [None]
  - Manufacturing materials issue [None]

NARRATIVE: CASE EVENT DATE: 20191202
